FAERS Safety Report 8290107 (Version 11)
Quarter: 2013Q2

REPORT INFORMATION
  Report Type: Spontaneous
  Country: US (occurrence: US)
  Receive Date: 20111214
  Receipt Date: 20130607
  Transmission Date: 20140414
  Serious: Yes (Hospitalization, Congenital Anomaly)
  Sender: FDA-Public Use
  Company Number: US-JNJFOC-20111204756

PATIENT
  Sex: Male
  Weight: 2.96 kg

DRUGS (11)
  1. TOPAMAX [Suspect]
     Indication: FOETAL EXPOSURE DURING PREGNANCY
     Route: 064
  2. CYMBALTA [Suspect]
     Indication: FOETAL EXPOSURE DURING PREGNANCY
     Route: 064
  3. INDERAL [Suspect]
     Indication: FOETAL EXPOSURE DURING PREGNANCY
     Route: 064
  4. LORTAB [Suspect]
     Indication: FOETAL EXPOSURE DURING PREGNANCY
     Route: 064
  5. AMOX [Suspect]
     Indication: PRODUCT USED FOR UNKNOWN INDICATION
     Route: 064
  6. CAMILA [Suspect]
     Indication: PRODUCT USED FOR UNKNOWN INDICATION
     Route: 064
  7. SULFAMETHOXAZOLE [Suspect]
     Indication: PRODUCT USED FOR UNKNOWN INDICATION
     Route: 064
  8. PROMETHAZINE [Suspect]
     Indication: FOETAL EXPOSURE DURING PREGNANCY
     Route: 064
  9. AZITHROMYCIN [Suspect]
     Indication: FOETAL EXPOSURE DURING PREGNANCY
     Route: 065
  10. FLUCONAZOLE [Suspect]
     Indication: FOETAL EXPOSURE DURING PREGNANCY
     Route: 064
  11. NITROFURANTOIN [Suspect]
     Indication: FOETAL EXPOSURE DURING PREGNANCY
     Route: 064

REACTIONS (15)
  - Atrial septal defect [Unknown]
  - Deafness bilateral [Recovering/Resolving]
  - Sensory integrative dysfunction [Unknown]
  - Dacryostenosis congenital [Unknown]
  - Cleft lip and palate [Recovering/Resolving]
  - Inguinal hernia [Recovering/Resolving]
  - Nose deformity [Recovering/Resolving]
  - Feeding disorder [Recovering/Resolving]
  - Failure to thrive [Unknown]
  - Dysphagia [Unknown]
  - Weight decreased [Recovering/Resolving]
  - Sleep apnoea syndrome [Unknown]
  - Gastrooesophageal reflux disease [Unknown]
  - Cryptorchism [Unknown]
  - Syndactyly [Unknown]
